FAERS Safety Report 24213012 (Version 1)
Quarter: 2024Q3

REPORT INFORMATION
  Report Type: Spontaneous
  Country: GB (occurrence: GB)
  Receive Date: 20240815
  Receipt Date: 20240815
  Transmission Date: 20241016
  Serious: Yes (Life-Threatening, Hospitalization)
  Sender: PERRIGO
  Company Number: GB-MLMSERVICE-20240801-PI147356-00191-1

PATIENT
  Age: 61 Year
  Sex: Female

DRUGS (2)
  1. LANSOPRAZOLE [Suspect]
     Active Substance: LANSOPRAZOLE
     Indication: Product used for unknown indication
     Dosage: UNKNOWN, UNKNOWN
     Route: 048
  2. LACOSAMIDE [Suspect]
     Active Substance: LACOSAMIDE
     Indication: Seizure
     Dosage: UNKNOWN, UNKNOWN
     Route: 065

REACTIONS (11)
  - Drug eruption [Recovering/Resolving]
  - Anaemia [Unknown]
  - Bronchopulmonary aspergillosis [Unknown]
  - Human T-cell lymphotropic virus infection [Recovering/Resolving]
  - Lymphopenia [Unknown]
  - Herpes simplex [Recovered/Resolved]
  - Renal injury [Unknown]
  - Lichenoid keratosis [Recovering/Resolving]
  - Liver injury [Unknown]
  - Metabolic encephalopathy [Unknown]
  - Cytomegalovirus infection [Unknown]
